FAERS Safety Report 22169071 (Version 1)
Quarter: 2023Q2

REPORT INFORMATION
  Report Type: Spontaneous
  Country: GB (occurrence: GB)
  Receive Date: 20230404
  Receipt Date: 20230404
  Transmission Date: 20230722
  Serious: Yes (Disabling, Other)
  Sender: FDA-Public Use
  Company Number: GB-MHRA-MED-202303211215506580-RDVTN

PATIENT
  Age: 23 Year
  Sex: Male

DRUGS (1)
  1. FINASTERIDE [Suspect]
     Active Substance: FINASTERIDE
     Indication: Androgenetic alopecia
     Dosage: 1 MILLIGRAM, DAILY
     Route: 065
     Dates: start: 20210901, end: 20210914

REACTIONS (9)
  - Anxiety [Recovering/Resolving]
  - Erectile dysfunction [Not Recovered/Not Resolved]
  - Ejaculation disorder [Recovering/Resolving]
  - Genital hypoaesthesia [Not Recovered/Not Resolved]
  - Headache [Recovered/Resolved]
  - Insomnia [Recovered/Resolved]
  - Loss of libido [Not Recovered/Not Resolved]
  - Penile curvature [Not Recovered/Not Resolved]
  - Testicular pain [Recovered/Resolved]

NARRATIVE: CASE EVENT DATE: 20210913
